FAERS Safety Report 8047983-9 (Version None)
Quarter: 2012Q1

REPORT INFORMATION
  Report Type: 
  Country: None (occurrence: None)
  Receive Date: 20120116
  Receipt Date: 20120110
  Transmission Date: 20120608
  Serious: Yes (Other)
  Sender: FDA-Public Use
  Company Number: US-ABBOTT-12P-163-0892030-00

PATIENT
  Sex: Female
  Weight: 108.96 kg

DRUGS (5)
  1. HUMIRA [Suspect]
     Dates: start: 20111201
  2. TRAZODONE HCL [Concomitant]
     Indication: INSOMNIA
  3. VIBRID [Concomitant]
     Indication: PRODUCT USED FOR UNKNOWN INDICATION
  4. HUMIRA [Suspect]
     Dates: start: 20111201, end: 20111201
  5. HUMIRA [Suspect]
     Indication: CROHN'S DISEASE
     Dates: start: 20111101, end: 20111101

REACTIONS (6)
  - MUSCULAR WEAKNESS [None]
  - CHILLS [None]
  - ARTHRALGIA [None]
  - NECK PAIN [None]
  - BACK PAIN [None]
  - FEELING ABNORMAL [None]
